FAERS Safety Report 6181072-3 (Version None)
Quarter: 2009Q2

REPORT INFORMATION
  Report Type: 
  Country: None (occurrence: None)
  Receive Date: 20090504
  Receipt Date: 20090504
  Transmission Date: 20091009
  Serious: Yes (Other)
  Sender: FDA-Public Use
  Company Number: None

PATIENT
  Age: 79 Year
  Sex: Male
  Weight: 85.2762 kg

DRUGS (1)
  1. LORAZEPAM [Suspect]

REACTIONS (8)
  - ANHEDONIA [None]
  - BACK PAIN [None]
  - DEPRESSION [None]
  - DYSPNOEA [None]
  - FATIGUE [None]
  - PNEUMONIA [None]
  - THINKING ABNORMAL [None]
  - VISION BLURRED [None]
